FAERS Safety Report 18962052 (Version 11)
Quarter: 2021Q3

REPORT INFORMATION
  Report Type: Spontaneous
  Country: IL (occurrence: IL)
  Receive Date: 20210302
  Receipt Date: 20210903
  Transmission Date: 20211014
  Serious: Yes (Hospitalization, Disabling)
  Sender: FDA-Public Use
  Company Number: IL-CELGENEUS-ISR-20210202695

PATIENT
  Age: 71 Year
  Sex: Male
  Weight: 69 kg

DRUGS (13)
  1. AZACITIDINE. [Suspect]
     Active Substance: AZACITIDINE
     Indication: MYELODYSPLASTIC SYNDROME
     Dosage: 75 MILLIGRAM/SQ. METER
     Route: 041
     Dates: start: 20210110, end: 20210118
  2. AZACITIDINE. [Suspect]
     Active Substance: AZACITIDINE
     Dosage: 37.5 MILLIGRAM/SQ. METER
     Route: 041
     Dates: start: 20210214, end: 20210215
  3. VENETOCLAX. [Suspect]
     Active Substance: VENETOCLAX
     Indication: MYELODYSPLASTIC SYNDROME
     Dosage: 400 MILLIGRAM
     Route: 048
     Dates: start: 20210110, end: 20210216
  4. DUODART [Concomitant]
     Active Substance: DUTASTERIDE\TAMSULOSIN
     Indication: URINARY HESITATION
     Route: 048
     Dates: start: 2018
  5. LIQUID OPTALGIN [Concomitant]
     Indication: EYE PAIN
  6. CIPRALEX [Concomitant]
     Active Substance: ESCITALOPRAM OXALATE
     Indication: DEPRESSION
  7. NOCTURNO [Concomitant]
     Indication: SLEEP DISORDER
     Dosage: 3.75 MILLIGRAM
     Route: 048
     Dates: start: 20210211, end: 20210214
  8. VENETOCLAX. [Suspect]
     Active Substance: VENETOCLAX
     Dosage: 400 MILLIGRAM
     Route: 048
     Dates: start: 20210314
  9. AZACITIDINE. [Suspect]
     Active Substance: AZACITIDINE
     Dosage: 75 MILLIGRAM/SQ. METER
     Route: 041
     Dates: start: 20210314
  10. PREDNISONE. [Concomitant]
     Active Substance: PREDNISONE
     Indication: MYELODYSPLASTIC SYNDROME
     Dosage: 5 MILLIGRAM
     Route: 048
     Dates: start: 202008, end: 20210131
  11. LIQUID OPTALGIN [Concomitant]
     Indication: HEADACHE
     Dosage: 30 DROPS
     Route: 048
  12. CIPRALEX [Concomitant]
     Active Substance: ESCITALOPRAM OXALATE
     Indication: ANXIETY
     Dosage: 10 MILLIGRAM
     Route: 048
     Dates: start: 20210211, end: 20210217
  13. ENSURE PLUS ADVANCE [Concomitant]
     Indication: NUTRITIONAL SUPPLEMENTATION
     Dosage: 440 MILLILITER
     Route: 048
     Dates: start: 20210202, end: 20210214

REACTIONS (4)
  - Neutrophil count decreased [Recovered/Resolved]
  - Cellulitis orbital [Recovered/Resolved]
  - Infection [Recovered/Resolved]
  - Fungal tracheitis [Recovered/Resolved]

NARRATIVE: CASE EVENT DATE: 20210128
